FAERS Safety Report 9069517 (Version 1)
Quarter: 2013Q1

REPORT INFORMATION
  Report Type: Report from Study
  Country: US (occurrence: US)
  Receive Date: 20130131
  Receipt Date: 20130131
  Transmission Date: 20140127
  Serious: No
  Sender: FDA-Public Use
  Company Number: US-ABBOTT-12P-163-1000562-00

PATIENT
  Age: 61 Year
  Sex: Female

DRUGS (9)
  1. HUMIRA [Suspect]
     Indication: PSORIATIC ARTHROPATHY
     Route: 058
  2. LUNESTA [Concomitant]
     Indication: INSOMNIA
     Dosage: AT BEDTIME
  3. VITAMIN [Concomitant]
     Indication: VITAMIN SUPPLEMENTATION
     Dosage: ONE DAILY
  4. VITAMIN D [Concomitant]
     Indication: VITAMIN SUPPLEMENTATION
  5. NIACINAMIDE [Concomitant]
     Indication: VITAMIN SUPPLEMENTATION
  6. COQ10 [Concomitant]
     Indication: VITAMIN SUPPLEMENTATION
  7. CARVEDILOL [Concomitant]
     Indication: ATRIAL FIBRILLATION
  8. DIGOXIN [Concomitant]
     Indication: ATRIAL FIBRILLATION
  9. ASPIRIN [Concomitant]

REACTIONS (6)
  - Incorrect dose administered [Unknown]
  - Injection site pain [Recovering/Resolving]
  - Injection site pain [Recovering/Resolving]
  - Atrial fibrillation [Unknown]
  - Psoriasis [Unknown]
  - Arthritis [Recovering/Resolving]
